FAERS Safety Report 4752211-3 (Version None)
Quarter: 2005Q3

REPORT INFORMATION
  Report Type: 
  Country: None (occurrence: None)
  Receive Date: 20050825
  Receipt Date: 20050815
  Transmission Date: 20060218
  Serious: Yes (Life-Threatening)
  Sender: FDA-Public Use
  Company Number: PHFR2005GB02752

PATIENT
  Age: 65 Year
  Sex: Female
  Weight: 80 kg

DRUGS (9)
  1. DICLOFENAC [Suspect]
     Indication: PAIN
     Dosage: UNK, UNK
     Route: 048
     Dates: end: 20050519
  2. SIMVASTATIN (NGX) [Suspect]
     Indication: HYPERLIPIDAEMIA
     Dosage: 80 MG/DAY
     Route: 048
     Dates: end: 20050519
  3. LISINOPRIL [Suspect]
     Dosage: 20 MG/DAY
     Route: 048
     Dates: end: 20050519
  4. FUROSEMIDE [Suspect]
     Dosage: 40 MG/DAY
     Route: 048
     Dates: end: 20050519
  5. CLOPIDOGREL [Concomitant]
     Dosage: 75 MG/DAY
     Route: 048
     Dates: end: 20050519
  6. ESOMEPRAZOLE [Concomitant]
     Dosage: 20 MG/DAY
     Route: 048
     Dates: end: 20050519
  7. ALLOPURINOL [Concomitant]
     Dosage: 50 MG/DAY
     Route: 048
     Dates: end: 20050519
  8. ATENOLOL [Concomitant]
     Dosage: 300 MG/DAY
     Route: 048
     Dates: start: 20050519
  9. AMITRIPTYLINE HCL [Concomitant]
     Dosage: 10 MG/DAY
     Route: 048

REACTIONS (10)
  - ALANINE AMINOTRANSFERASE INCREASED [None]
  - ASPARTATE AMINOTRANSFERASE INCREASED [None]
  - BLOOD ALKALINE PHOSPHATASE INCREASED [None]
  - BLOOD CREATINE PHOSPHOKINASE INCREASED [None]
  - BLOOD CREATININE INCREASED [None]
  - CARDIAC ARREST [None]
  - DEHYDRATION [None]
  - HYPOTENSION [None]
  - RENAL FAILURE ACUTE [None]
  - RHABDOMYOLYSIS [None]
